FAERS Safety Report 6042970-4 (Version None)
Quarter: 2009Q1

REPORT INFORMATION
  Report Type: 
  Country: None (occurrence: None)
  Receive Date: 20090119
  Receipt Date: 20090109
  Transmission Date: 20090719
  Serious: Yes (Hospitalization)
  Sender: FDA-Public Use
  Company Number: IN-ELI_LILLY_AND_COMPANY-IN200812005651

PATIENT
  Age: 50 Year
  Sex: Female

DRUGS (3)
  1. HUMULIN R [Suspect]
     Indication: DIABETES MELLITUS
     Dosage: 8 U, UNKNOWN
     Route: 058
     Dates: start: 20081208, end: 20081201
  2. HUMULIN R [Suspect]
     Dosage: 15 IU, UNKNOWN
     Route: 058
     Dates: start: 20081201, end: 20081218
  3. HUMULIN R [Suspect]
     Dosage: UNK, UNKNOWN
     Route: 058
     Dates: start: 20081223

REACTIONS (1)
  - DIABETES MELLITUS INADEQUATE CONTROL [None]
